FAERS Safety Report 24702757 (Version 3)
Quarter: 2025Q1

REPORT INFORMATION
  Report Type: Spontaneous
  Country: DE (occurrence: DE)
  Receive Date: 20241205
  Receipt Date: 20250305
  Transmission Date: 20250408
  Serious: Yes (Hospitalization, Other)
  Sender: MYLAN
  Company Number: DE-UCBSA-2024059549

PATIENT
  Age: 35 Year
  Sex: Male

DRUGS (12)
  1. LEVETIRACETAM [Suspect]
     Active Substance: LEVETIRACETAM
     Indication: Seizure
     Dosage: 250 MILLIGRAM, BID (250 MILLIGRAM, 2X/DAY), 500MG,QD
     Dates: start: 202403
  2. FENFLURAMINE HYDROCHLORIDE [Interacting]
     Active Substance: FENFLURAMINE HYDROCHLORIDE
     Indication: Seizure
     Dosage: 6 MILLILITER, BID (6 MILLILITER, 2X/DAY)
     Dates: start: 202403, end: 2024
  3. FENFLURAMINE HYDROCHLORIDE [Interacting]
     Active Substance: FENFLURAMINE HYDROCHLORIDE
     Dosage: BID (0.5 ML IN MORNING, 1 ML IN EVENING)
     Dates: start: 202404
  4. FENFLURAMINE HYDROCHLORIDE [Interacting]
     Active Substance: FENFLURAMINE HYDROCHLORIDE
     Dosage: 1 MILLILITER, BID (1 MILLILITER, 2X/DAY), 2 MILLILITER, QD
  5. FENFLURAMINE HYDROCHLORIDE [Interacting]
     Active Substance: FENFLURAMINE HYDROCHLORIDE
     Dosage: BID (1 ML IN MORNING, 1.5 ML IN EVENING)
     Dates: start: 202407
  6. FENFLURAMINE HYDROCHLORIDE [Interacting]
     Active Substance: FENFLURAMINE HYDROCHLORIDE
     Dosage: BID (2 ML IN MORNING, 1.8 ML IN EVENING)
     Dates: start: 2024
  7. FENFLURAMINE HYDROCHLORIDE [Interacting]
     Active Substance: FENFLURAMINE HYDROCHLORIDE
  8. POTASSIUM BROMIDE [Interacting]
     Active Substance: POTASSIUM BROMIDE
     Indication: Seizure
  9. POTASSIUM BROMIDE [Interacting]
     Active Substance: POTASSIUM BROMIDE
  10. POTASSIUM BROMIDE [Interacting]
     Active Substance: POTASSIUM BROMIDE
  11. POTASSIUM BROMIDE [Interacting]
     Active Substance: POTASSIUM BROMIDE
  12. VALPROIC ACID [Suspect]
     Active Substance: VALPROIC ACID
     Indication: Seizure
     Dosage: 500 MILLIGRAM, BID (500 MILLIGRAM, 2X/DAY)
     Dates: start: 202403

REACTIONS (13)
  - Encephalopathy [Unknown]
  - Drug level increased [Unknown]
  - Psychomotor skills impaired [Unknown]
  - Acne [Unknown]
  - Skin disorder [Unknown]
  - Ataxia [Unknown]
  - Generalised tonic-clonic seizure [Unknown]
  - Somnolence [Recovering/Resolving]
  - Asthenia [Unknown]
  - Anxiety [Unknown]
  - Toxicity to various agents [Unknown]
  - Drug interaction [Unknown]
  - Wrong technique in product usage process [Unknown]

NARRATIVE: CASE EVENT DATE: 20240301
